FAERS Safety Report 15098436 (Version 1)
Quarter: 2018Q3

REPORT INFORMATION
  Report Type: Spontaneous
  Country: US (occurrence: US)
  Receive Date: 20180702
  Receipt Date: 20180702
  Transmission Date: 20181010
  Serious: Yes (Hospitalization, Other)
  Sender: FDA-Public Use
  Company Number: US-OTSUKA-2018_017068

PATIENT
  Sex: Male

DRUGS (3)
  1. ABILIFY [Suspect]
     Active Substance: ARIPIPRAZOLE
     Indication: ANXIETY
     Dosage: 10 MG, QD
     Route: 065
     Dates: start: 201501
  2. ABILIFY [Suspect]
     Active Substance: ARIPIPRAZOLE
     Indication: MAJOR DEPRESSION
     Dosage: 20 MG, QD
     Route: 065
     Dates: end: 201611
  3. ABILIFY [Suspect]
     Active Substance: ARIPIPRAZOLE
     Indication: POST-TRAUMATIC STRESS DISORDER

REACTIONS (10)
  - Product use in unapproved indication [Unknown]
  - Suicide attempt [Recovered/Resolved]
  - Suicidal ideation [Recovered/Resolved]
  - Anxiety [Unknown]
  - Gambling disorder [Recovered/Resolved]
  - Mental disorder [Unknown]
  - Injury [Unknown]
  - Eating disorder [Recovered/Resolved]
  - Economic problem [Unknown]
  - Anhedonia [Unknown]

NARRATIVE: CASE EVENT DATE: 201501
